FAERS Safety Report 24206069 (Version 1)
Quarter: 2024Q3

REPORT INFORMATION
  Report Type: Spontaneous
  Country: US (occurrence: US)
  Receive Date: 20240813
  Receipt Date: 20240813
  Transmission Date: 20241017
  Serious: No
  Sender: ABBVIE
  Company Number: US-ABBVIE-5877718

PATIENT
  Age: 50 Year
  Sex: Female
  Weight: 75 kg

DRUGS (1)
  1. LATISSE [Suspect]
     Active Substance: BIMATOPROST
     Indication: Growth of eyelashes
     Dosage: FORM STRENGTH: 0.03 PERCENT
     Route: 061
     Dates: start: 2022, end: 202401

REACTIONS (3)
  - Madarosis [Not Recovered/Not Resolved]
  - Growth of eyelashes [Not Recovered/Not Resolved]
  - Hypotrichosis [Not Recovered/Not Resolved]

NARRATIVE: CASE EVENT DATE: 20240301
